FAERS Safety Report 4393763-5 (Version None)
Quarter: 2004Q3

REPORT INFORMATION
  Report Type: 
  Country: None (occurrence: None)
  Receive Date: 20040706
  Receipt Date: 20040624
  Transmission Date: 20050211
  Serious: Yes (Life-Threatening)
  Sender: FDA-Public Use
  Company Number: J200402834

PATIENT
  Age: 81 Year
  Sex: Male

DRUGS (1)
  1. (MYSLEE)  ZOLPIDEM TABLET 5MG [Suspect]
     Dosage: 5 MG PO
     Route: 048
     Dates: start: 20040615, end: 20040615

REACTIONS (1)
  - HYPERCAPNIA [None]
